FAERS Safety Report 7198879-6 (Version None)
Quarter: 2010Q4

REPORT INFORMATION
  Report Type: 
  Country: None (occurrence: None)
  Receive Date: 20101227
  Receipt Date: 20101215
  Transmission Date: 20110411
  Serious: Yes (Hospitalization, Disabling)
  Sender: FDA-Public Use
  Company Number: US-ALLERGAN-200209281

PATIENT
  Age: 24 Month
  Sex: Female
  Weight: 11 kg

DRUGS (2)
  1. BOTOXA? [Suspect]
     Indication: MUSCLE SPASTICITY
     Dosage: 100UNITS, PRN
     Route: 030
     Dates: start: 20011220, end: 20011220
  2. PHENOBARBITAL [Concomitant]
     Indication: PRODUCT USED FOR UNKNOWN INDICATION
     Dosage: UNK
     Dates: start: 20011001

REACTIONS (14)
  - ABASIA [None]
  - APHAGIA [None]
  - APHASIA [None]
  - BRAIN OEDEMA [None]
  - CEREBROVASCULAR ACCIDENT [None]
  - CONVULSION [None]
  - DEVELOPMENTAL DELAY [None]
  - ENCEPHALITIS [None]
  - GASTROOESOPHAGEAL REFLUX DISEASE [None]
  - HYPOGLYCAEMIA [None]
  - LARYNGEAL STENOSIS [None]
  - OESOPHAGITIS [None]
  - RESPIRATORY ARREST [None]
  - STRIDOR [None]
